FAERS Safety Report 4475470-3 (Version None)
Quarter: 2004Q4

REPORT INFORMATION
  Report Type: 
  Country: None (occurrence: None)
  Receive Date: 20041014
  Receipt Date: 20041014
  Transmission Date: 20050328
  Serious: Yes (Hospitalization)
  Sender: FDA-Public Use
  Company Number: None

PATIENT
  Age: 3 Year
  Sex: Female
  Weight: 18.2 kg

DRUGS (9)
  1. MERCAPTOPURINE [Suspect]
     Indication: ACUTE LYMPHOCYTIC LEUKAEMIA
     Dosage: 25MG PO M-F 50MG S-S
     Route: 048
     Dates: start: 20041006
  2. MERCAPTOPURINE [Suspect]
     Indication: ACUTE LYMPHOCYTIC LEUKAEMIA
     Dosage: 25MG PO M-F 50MG S-S
     Route: 048
     Dates: start: 20041007
  3. PEG-ASP [Suspect]
     Dosage: 1475 UNITS IM
     Route: 030
     Dates: start: 20040913
  4. ALUMINUM HYDROXIDE AND MAGNESIUM TRISILICATE [Concomitant]
  5. ZANTAC [Concomitant]
  6. BACTRIM [Concomitant]
  7. DECADRON [Concomitant]
  8. IT ARA-C [Concomitant]
  9. METHOTREXATE [Concomitant]

REACTIONS (9)
  - ABDOMINAL DISTENSION [None]
  - BLOOD CALCIUM INCREASED [None]
  - BLOOD PHOSPHORUS INCREASED [None]
  - FACE OEDEMA [None]
  - HYDRONEPHROSIS [None]
  - LUNG INFILTRATION [None]
  - OEDEMA PERIPHERAL [None]
  - RENAL FAILURE ACUTE [None]
  - RESPIRATORY DISTRESS [None]
